FAERS Safety Report 7070119-8 (Version None)
Quarter: 2010Q4

REPORT INFORMATION
  Report Type: 
  Country: None (occurrence: None)
  Receive Date: 20101028
  Receipt Date: 20100909
  Transmission Date: 20110411
  Serious: No
  Sender: FDA-Public Use
  Company Number: US-WYE-H17345310

PATIENT
  Age: 84 Year
  Sex: Female

DRUGS (3)
  1. MYLOTARG [Suspect]
     Indication: MYELOID LEUKAEMIA
     Dosage: NOT SPECIFIED
     Route: 042
     Dates: start: 20070101, end: 20070101
  2. MYLOTARG [Suspect]
     Dosage: NOT SPECIFIED
     Route: 042
     Dates: start: 20080101, end: 20080101
  3. MYLOTARG [Suspect]
     Dosage: NOT SPECIFIED
     Route: 042
     Dates: start: 20090101, end: 20090101

REACTIONS (1)
  - DISEASE RECURRENCE [None]
